FAERS Safety Report 17539807 (Version 3)
Quarter: 2021Q2

REPORT INFORMATION
  Report Type: Spontaneous
  Country: US (occurrence: US)
  Receive Date: 20200313
  Receipt Date: 20210618
  Transmission Date: 20210716
  Serious: Yes (Other)
  Sender: FDA-Public Use
  Company Number: US-GILEAD-2020-0454520

PATIENT
  Age: 50 Year
  Sex: Male
  Weight: 63.49 kg

DRUGS (47)
  1. BACTRIM [Concomitant]
     Active Substance: SULFAMETHOXAZOLE\TRIMETHOPRIM
  2. DILANTIN D.A. [Concomitant]
     Active Substance: PHENYTOIN SODIUM
  3. FLOMAX [Concomitant]
     Active Substance: TAMSULOSIN HYDROCHLORIDE
  4. LITHIUM. [Concomitant]
     Active Substance: LITHIUM
  5. INTELENCE [Concomitant]
     Active Substance: ETRAVIRINE
  6. ISENTRESS [Concomitant]
     Active Substance: RALTEGRAVIR POTASSIUM
  7. PREZCOBIX [Concomitant]
     Active Substance: COBICISTAT\DARUNAVIR ETHANOLATE
  8. VIREAD [Suspect]
     Active Substance: TENOFOVIR DISOPROXIL FUMARATE
     Indication: HIV INFECTION
     Dosage: UNK
     Route: 048
     Dates: start: 20040217, end: 20040318
  9. KALETRA [Concomitant]
     Active Substance: LOPINAVIR\RITONAVIR
  10. REYATAZ [Concomitant]
     Active Substance: ATAZANAVIR SULFATE
  11. VIRACEPT [Concomitant]
     Active Substance: NELFINAVIR MESYLATE
  12. ZIAGEN [Concomitant]
     Active Substance: ABACAVIR SULFATE
  13. KEPPRA [Concomitant]
     Active Substance: LEVETIRACETAM
  14. ACETAMINOPHEN. [Concomitant]
     Active Substance: ACETAMINOPHEN
  15. TEGRETOL [Concomitant]
     Active Substance: CARBAMAZEPINE
  16. VANCOMYCIN [Concomitant]
     Active Substance: VANCOMYCIN
  17. EPZICOM [Concomitant]
     Active Substance: ABACAVIR SULFATE\LAMIVUDINE
  18. RETROVIR [Concomitant]
     Active Substance: ZIDOVUDINE
  19. TIVICAY [Concomitant]
     Active Substance: DOLUTEGRAVIR SODIUM
  20. LASIX [Concomitant]
     Active Substance: FUROSEMIDE
  21. CRIXIVAN [Concomitant]
     Active Substance: INDINAVIR SULFATE
  22. EPIVIR [Concomitant]
     Active Substance: LAMIVUDINE
  23. DEXAMETHASONE. [Concomitant]
     Active Substance: DEXAMETHASONE
  24. GANCICLOVIR. [Concomitant]
     Active Substance: GANCICLOVIR
  25. HALOPERIDOL. [Concomitant]
     Active Substance: HALOPERIDOL
  26. RANITIDINE. [Concomitant]
     Active Substance: RANITIDINE
  27. TRIAMCINOLONE [Concomitant]
     Active Substance: TRIAMCINOLONE
  28. TRIZIVIR [Concomitant]
     Active Substance: ABACAVIR SULFATE\LAMIVUDINE\ZIDOVUDINE
  29. ZERIT [Concomitant]
     Active Substance: STAVUDINE
  30. AMOXICILLIN. [Concomitant]
     Active Substance: AMOXICILLIN
  31. OMEPRAZOLE. [Concomitant]
     Active Substance: OMEPRAZOLE
  32. PANTOPRAZOLE [Concomitant]
     Active Substance: PANTOPRAZOLE
  33. PENICILLIN B [Concomitant]
     Active Substance: PHENETICILLIN
  34. DESCOVY [Concomitant]
     Active Substance: EMTRICITABINE\TENOFOVIR ALAFENAMIDE FUMARATE
  35. ACYCLOVIR [ACICLOVIR] [Concomitant]
     Active Substance: ACYCLOVIR
  36. AMITRIPTYLINE [Concomitant]
     Active Substance: AMITRIPTYLINE
  37. INTERFERON ALFA NOS [Concomitant]
     Active Substance: INTERFERON ALFA-2A OR INTERFERON ALFA-2B
  38. MITOMYCIN C [Concomitant]
     Active Substance: MITOMYCIN
  39. COMBIVIR [Concomitant]
     Active Substance: LAMIVUDINE\ZIDOVUDINE
  40. SUSTIVA [Concomitant]
     Active Substance: EFAVIRENZ
  41. TRUVADA [Suspect]
     Active Substance: EMTRICITABINE\TENOFOVIR DISOPROXIL FUMARATE
     Indication: HIV INFECTION
     Dosage: UNK
     Route: 048
     Dates: start: 20130204, end: 20160707
  42. AMPICILLIN [Concomitant]
     Active Substance: AMPICILLIN
  43. ASPIRIN (E.C.) [Concomitant]
     Active Substance: ASPIRIN
  44. DEPAKOTE [Concomitant]
     Active Substance: DIVALPROEX SODIUM
  45. PREDNISONE. [Concomitant]
     Active Substance: PREDNISONE
  46. NORVIR [Concomitant]
     Active Substance: RITONAVIR
  47. VIDEX [Concomitant]
     Active Substance: DIDANOSINE

REACTIONS (15)
  - Pain [Unknown]
  - Wrist fracture [Not Recovered/Not Resolved]
  - Cervical spinal stenosis [Unknown]
  - Anxiety [Unknown]
  - Multiple fractures [Unknown]
  - Bone density decreased [Unknown]
  - Intervertebral disc degeneration [Not Recovered/Not Resolved]
  - Neuropathy peripheral [Not Recovered/Not Resolved]
  - Osteoporosis [Not Recovered/Not Resolved]
  - Spinal cord compression [Unknown]
  - Upper limb fracture [Unknown]
  - Spinal fracture [Not Recovered/Not Resolved]
  - Osteopenia [Not Recovered/Not Resolved]
  - Emotional distress [Unknown]
  - Anhedonia [Unknown]

NARRATIVE: CASE EVENT DATE: 201210
